FAERS Safety Report 9761244 (Version 2)
Quarter: 2013Q4

REPORT INFORMATION
  Report Type: Other
  Country: ES (occurrence: ES)
  Receive Date: 20131216
  Receipt Date: 20131216
  Transmission Date: 20140711
  Serious: Yes (Hospitalization, Other)
  Sender: FDA-Public Use
  Company Number: ES-BRISTOL-MYERS SQUIBB COMPANY-19881853

PATIENT
  Age: 52 Year
  Sex: Male

DRUGS (2)
  1. METFORMIN HCL [Suspect]
     Indication: TYPE 2 DIABETES MELLITUS
  2. ETHANOL [Suspect]

REACTIONS (11)
  - Lactic acidosis [Recovering/Resolving]
  - Malaise [Recovering/Resolving]
  - Depressed level of consciousness [Recovering/Resolving]
  - Coma scale abnormal [Recovering/Resolving]
  - Hypoglycaemia [Recovering/Resolving]
  - Renal failure acute [Recovering/Resolving]
  - Blood pressure decreased [Recovering/Resolving]
  - Pupils unequal [Recovering/Resolving]
  - Haemodynamic instability [Recovering/Resolving]
  - Alcohol poisoning [Recovering/Resolving]
  - Diarrhoea [Recovering/Resolving]
